FAERS Safety Report 8015998-2 (Version None)
Quarter: 2011Q4

REPORT INFORMATION
  Report Type: 
  Country: None (occurrence: None)
  Receive Date: 20111230
  Receipt Date: 20111230
  Transmission Date: 20120403
  Serious: Yes (Other)
  Sender: FDA-Public Use
  Company Number: None

PATIENT
  Age: 8 Year
  Sex: Male
  Weight: 39.008 kg

DRUGS (1)
  1. SINGULAIR [Suspect]
     Indication: SEASONAL ALLERGY
     Dosage: 1 CHEWABLE TABLET
     Dates: start: 20090906, end: 20100418

REACTIONS (5)
  - AGGRESSION [None]
  - SELF-INJURIOUS IDEATION [None]
  - CRYING [None]
  - MOOD SWINGS [None]
  - NIGHTMARE [None]
